FAERS Safety Report 19755104 (Version 1)
Quarter: 2021Q3

REPORT INFORMATION
  Report Type: Spontaneous
  Country: US (occurrence: US)
  Receive Date: 20210824
  Receipt Date: 20210824
  Transmission Date: 20211014
  Serious: No
  Sender: FDA-Public Use
  Company Number: None

PATIENT

DRUGS (2)
  1. PHENYLPHRINE HYDROCHLORIDE OPHT [Suspect]
     Active Substance: PHENYLEPHRINE HYDROCHLORIDE
     Route: 047
  2. TROPICAMIDE. [Suspect]
     Active Substance: TROPICAMIDE
     Route: 047

REACTIONS (3)
  - Product packaging confusion [None]
  - Product storage error [None]
  - Product label confusion [None]
